FAERS Safety Report 19409112 (Version 2)
Quarter: 2021Q3

REPORT INFORMATION
  Report Type: Other
  Country: CN (occurrence: CN)
  Receive Date: 20210613
  Receipt Date: 20210701
  Transmission Date: 20211014
  Serious: Yes (Death)
  Sender: FDA-Public Use
  Company Number: CN-ROCHE-2845019

PATIENT
  Age: 70 Year
  Sex: Male
  Weight: 63 kg

DRUGS (1)
  1. RITUXIMAB. [Suspect]
     Active Substance: RITUXIMAB
     Indication: NON-HODGKIN^S LYMPHOMA
     Route: 042

REACTIONS (4)
  - Nasopharyngitis [Recovering/Resolving]
  - Chills [Recovering/Resolving]
  - Myocardial ischaemia [Fatal]
  - Chest discomfort [Recovering/Resolving]
